FAERS Safety Report 14945410 (Version 1)
Quarter: 2018Q2

REPORT INFORMATION
  Report Type: Spontaneous
  Country: US (occurrence: US)
  Receive Date: 20180529
  Receipt Date: 20180529
  Transmission Date: 20180711
  Serious: No
  Sender: FDA-Public Use
  Company Number: US-BIODELIVERY SCIENCES INTERNATIONAL-2017BDSI0124

PATIENT
  Age: 71 Year
  Sex: Male
  Weight: 129.39 kg

DRUGS (5)
  1. GABAPENTIN. [Concomitant]
     Active Substance: GABAPENTIN
     Indication: NERVE INJURY
  2. ASCORBIC ACID/TOCOPHERYL ACETATE/ZINC OXIDE/CUPRIC OXIDE/BETACAROTENE [Concomitant]
     Indication: MACULAR DEGENERATION
  3. BUPRENORPHINE. [Suspect]
     Active Substance: BUPRENORPHINE
     Route: 002
     Dates: start: 20170712
  4. PRIMIDONE. [Concomitant]
     Active Substance: PRIMIDONE
     Indication: MUSCLE TWITCHING
  5. BUPRENORPHINE. [Suspect]
     Active Substance: BUPRENORPHINE
     Indication: BACK PAIN
     Route: 002
     Dates: start: 20170628, end: 20170711

REACTIONS (5)
  - Drug administration error [Unknown]
  - Oral administration complication [Unknown]
  - Product adhesion issue [Unknown]
  - Wrong technique in product usage process [Unknown]
  - Drug ineffective [Unknown]

NARRATIVE: CASE EVENT DATE: 20170628
